FAERS Safety Report 6074214-1 (Version None)
Quarter: 2009Q1

REPORT INFORMATION
  Report Type: 
  Country: None (occurrence: None)
  Receive Date: 20090211
  Receipt Date: 20090130
  Transmission Date: 20090719
  Serious: Yes (Life-Threatening)
  Sender: FDA-Public Use
  Company Number: JP-SANOFI-SYNTHELABO-A01200900974

PATIENT
  Sex: Male
  Weight: 50 kg

DRUGS (5)
  1. LENDORMIN [Concomitant]
  2. AVASTIN [Suspect]
     Indication: COLON CANCER RECURRENT
     Route: 041
  3. CALCIUM LEVOFOLINATE [Suspect]
     Indication: COLON CANCER RECURRENT
     Dosage: 300 MG
     Route: 041
  4. FLUOROURACIL [Suspect]
     Indication: COLON CANCER RECURRENT
     Dosage: 625 MG
     Route: 041
  5. ELPLAT [Suspect]
     Indication: COLON CANCER RECURRENT
     Dosage: 130 MG
     Route: 041

REACTIONS (3)
  - ANASTOMOTIC COMPLICATION [None]
  - HYPOAESTHESIA [None]
  - HYPOAESTHESIA ORAL [None]
